FAERS Safety Report 5857945-5 (Version None)
Quarter: 2008Q3

REPORT INFORMATION
  Report Type: 
  Country: None (occurrence: None)
  Receive Date: 20080825
  Receipt Date: 20080825
  Transmission Date: 20090109
  Serious: Yes (Hospitalization)
  Sender: FDA-Public Use
  Company Number: None

PATIENT
  Age: 26 Year
  Sex: Female
  Weight: 86.1834 kg

DRUGS (1)
  1. MIRENA [Suspect]

REACTIONS (2)
  - DEVICE MIGRATION [None]
  - IUCD COMPLICATION [None]
